FAERS Safety Report 20138200 (Version 1)
Quarter: 2021Q4

REPORT INFORMATION
  Report Type: Spontaneous
  Country: US (occurrence: US)
  Receive Date: 20211202
  Receipt Date: 20211202
  Transmission Date: 20220303
  Serious: Yes (Life-Threatening, Hospitalization, Disabling, Other)
  Sender: FDA-Public Use
  Company Number: US-JNJFOC-20211154484

PATIENT

DRUGS (1)
  1. XARELTO [Suspect]
     Active Substance: RIVAROXABAN
     Indication: Product used for unknown indication
     Dosage: UNK
     Route: 048

REACTIONS (9)
  - Thrombosis [Unknown]
  - Cardiac failure [Unknown]
  - Pericardial effusion [Unknown]
  - Catheterisation cardiac [Unknown]
  - Gallbladder disorder [Unknown]
  - Cardiomegaly [Unknown]
  - Fatigue [Unknown]
  - Impaired work ability [Unknown]
  - Cough [Not Recovered/Not Resolved]

NARRATIVE: CASE EVENT DATE: 20180101
